FAERS Safety Report 11710977 (Version 1)
Quarter: 2015Q4

REPORT INFORMATION
  Report Type: Spontaneous
  Country: US (occurrence: US)
  Receive Date: 20151104
  Receipt Date: 20151104
  Transmission Date: 20160304
  Serious: Yes (Life-Threatening, Hospitalization)
  Sender: FDA-Public Use
  Company Number: US-ELI_LILLY_AND_COMPANY-US201105000872

PATIENT
  Age: 50 Year

DRUGS (1)
  1. FORTEO [Suspect]
     Active Substance: TERIPARATIDE
     Indication: BONE DENSITY DECREASED
     Dosage: 20 UG, QD
     Route: 065
     Dates: start: 201009

REACTIONS (2)
  - Pneumonia [Unknown]
  - Hypopnoea [Unknown]

NARRATIVE: CASE EVENT DATE: 201104
